FAERS Safety Report 5089138-6 (Version None)
Quarter: 2006Q3

REPORT INFORMATION
  Report Type: 
  Country: None (occurrence: None)
  Receive Date: 20060825
  Receipt Date: 20060821
  Transmission Date: 20061208
  Serious: Yes (Hospitalization)
  Sender: FDA-Public Use
  Company Number: ES-BOEHRINGER INGELHEIM PHARMACEUTICALS, INC.-2006-DE-04339GD

PATIENT
  Age: 11 Year
  Sex: Female

DRUGS (1)
  1. CLONIDINE [Suspect]
     Indication: ENDOCRINE TEST

REACTIONS (11)
  - DYSARTHRIA [None]
  - HALLUCINATION [None]
  - HYPERTONIA [None]
  - HYPOTENSION [None]
  - HYPOTONIA [None]
  - LOSS OF CONSCIOUSNESS [None]
  - PALLOR [None]
  - PARAESTHESIA [None]
  - PSYCHOMOTOR HYPERACTIVITY [None]
  - SOMNOLENCE [None]
  - TETANY [None]
